FAERS Safety Report 19469426 (Version 2)
Quarter: 2021Q3

REPORT INFORMATION
  Report Type: Spontaneous
  Country: AU (occurrence: AU)
  Receive Date: 20210628
  Receipt Date: 20210702
  Transmission Date: 20211014
  Serious: Yes (Other)
  Sender: FDA-Public Use
  Company Number: AU-GLAXOSMITHKLINE-AU2021135502

PATIENT
  Sex: Male

DRUGS (1)
  1. TAFENOQUINE [Suspect]
     Active Substance: TAFENOQUINE
     Indication: PRODUCT USED FOR UNKNOWN INDICATION
     Dosage: UNK

REACTIONS (3)
  - Bipolar disorder [Unknown]
  - Mental disorder [Unknown]
  - Post-traumatic stress disorder [Unknown]
